FAERS Safety Report 25058284 (Version 1)
Quarter: 2025Q1

REPORT INFORMATION
  Report Type: Spontaneous
  Country: US (occurrence: None)
  Receive Date: 20250308
  Receipt Date: 20250308
  Transmission Date: 20250409
  Serious: No
  Sender: FDA-CTU
  Company Number: None

PATIENT
  Sex: Female

DRUGS (5)
  1. TREPROSTINIL [Suspect]
     Active Substance: TREPROSTINIL
     Indication: Pulmonary arterial hypertension
     Route: 042
  2. FLOLAN STERILE DILUENT (50ML) [Concomitant]
  3. DEVICE [Concomitant]
     Active Substance: DEVICE
  4. STERILE DILUENT FOR REMODULIN [Concomitant]
     Active Substance: WATER
  5. REMODULIN [Concomitant]
     Active Substance: TREPROSTINIL

REACTIONS (2)
  - Device malfunction [None]
  - Device occlusion [None]
